FAERS Safety Report 17149366 (Version 1)
Quarter: 2019Q4

REPORT INFORMATION
  Report Type: Spontaneous
  Country: PK (occurrence: PK)
  Receive Date: 20191213
  Receipt Date: 20191213
  Transmission Date: 20200122
  Serious: Yes (Hospitalization, Other)
  Sender: FDA-Public Use
  Company Number: PK-ROCHE-2495392

PATIENT
  Sex: Female

DRUGS (3)
  1. RISTOVA [Suspect]
     Active Substance: RITUXIMAB
     Indication: GRANULOMATOSIS WITH POLYANGIITIS
     Route: 042
  2. RISTOVA [Suspect]
     Active Substance: RITUXIMAB
     Route: 042
  3. METHYLPREDNISOLONE. [Suspect]
     Active Substance: METHYLPREDNISOLONE
     Indication: GRANULOMATOSIS WITH POLYANGIITIS
     Route: 065

REACTIONS (11)
  - Neutrophilia [Unknown]
  - Limb injury [Unknown]
  - Gait disturbance [Unknown]
  - Cyst [Unknown]
  - Hypoacusis [Recovered/Resolved]
  - Infection [Unknown]
  - Aphasia [Recovered/Resolved]
  - Feeding disorder [Unknown]
  - Pain [Unknown]
  - Arthralgia [Unknown]
  - Urinary tract infection [Unknown]
